FAERS Safety Report 8679625 (Version 2)
Quarter: 2013Q1

REPORT INFORMATION
  Report Type: Spontaneous
  Country: US (occurrence: None)
  Receive Date: 20120706
  Receipt Date: 20130219
  Transmission Date: 20140127
  Serious: Yes (Other)
  Sender: FDA-Public Use
  Company Number: DSU-2012-05234

PATIENT
  Age: 71 Year
  Sex: Female

DRUGS (5)
  1. OLMESARTAN MEDOXOMIL [Suspect]
     Dosage: PER ORAL
     Route: 048
     Dates: end: 201105
  2. TENORMIN (ATENOLOL) [Concomitant]
  3. PROCARDIA (NIFEDIPINE) [Concomitant]
  4. CEPHALEXIN (CEFALEXIN) [Concomitant]
  5. PREMARIN (ESTROGENS CONJUGATED) [Concomitant]

REACTIONS (2)
  - WEIGHT DECREASED [None]
  - Colitis microscopic [None]
